FAERS Safety Report 23674026 (Version 1)
Quarter: 2024Q1

REPORT INFORMATION
  Report Type: Spontaneous
  Country: US (occurrence: US)
  Receive Date: 20240326
  Receipt Date: 20240326
  Transmission Date: 20240409
  Serious: No
  Sender: FDA-Public Use
  Company Number: US-TEVA-VS-3138801

PATIENT
  Sex: Female

DRUGS (1)
  1. BUPRENORPHINE [Suspect]
     Active Substance: BUPRENORPHINE
     Indication: Product used for unknown indication
     Dosage: 10 MCG/HR
     Route: 065

REACTIONS (7)
  - Product quality issue [Unknown]
  - Product use complaint [Unknown]
  - Product label issue [Unknown]
  - Pain [Unknown]
  - Drug ineffective [Unknown]
  - Product use complaint [Unknown]
  - Product adhesion issue [Unknown]
